FAERS Safety Report 9456018 (Version 1)
Quarter: 2013Q3

REPORT INFORMATION
  Report Type: Report from Study
  Country: US (occurrence: US)
  Receive Date: 20130813
  Receipt Date: 20130813
  Transmission Date: 20140515
  Serious: Yes (Hospitalization, Other)
  Sender: FDA-Public Use
  Company Number: US-ABBOTT-13P-163-1100230-00

PATIENT
  Age: 46 Year
  Sex: Female

DRUGS (2)
  1. HUMIRA [Suspect]
     Indication: CROHN^S DISEASE
     Dates: start: 20130412, end: 20130607
  2. MULTIVITAMIN [Concomitant]
     Indication: PRODUCT USED FOR UNKNOWN INDICATION

REACTIONS (16)
  - Malaise [Recovering/Resolving]
  - Abdominal abscess [Unknown]
  - Perirectal abscess [Unknown]
  - Crohn^s disease [Recovering/Resolving]
  - Abscess intestinal [Recovering/Resolving]
  - Sepsis [Recovering/Resolving]
  - Staphylococcal infection [Recovering/Resolving]
  - Staphylococcal infection [Recovering/Resolving]
  - Localised infection [Recovering/Resolving]
  - Infection [Recovering/Resolving]
  - Abscess intestinal [Recovering/Resolving]
  - Intestinal dilatation [Recovering/Resolving]
  - Colitis [Recovering/Resolving]
  - Drug ineffective [Unknown]
  - Local swelling [Unknown]
  - Local swelling [Recovering/Resolving]
